FAERS Safety Report 9147158 (Version 1)
Quarter: 2013Q1

REPORT INFORMATION
  Report Type: Spontaneous
  Country: US (occurrence: US)
  Receive Date: 20130307
  Receipt Date: 20130307
  Transmission Date: 20140127
  Serious: Yes (Hospitalization)
  Sender: FDA-Public Use
  Company Number: US-BAYER-2013-028408

PATIENT
  Age: 33 Year
  Sex: Female

DRUGS (4)
  1. YAZ [Suspect]
  2. YASMIN [Suspect]
  3. OCELLA [Suspect]
  4. NUVARING [Concomitant]
     Indication: CONTRACEPTION

REACTIONS (2)
  - Pulmonary embolism [None]
  - Deep vein thrombosis [None]
